FAERS Safety Report 5158839-3 (Version None)
Quarter: 2006Q4

REPORT INFORMATION
  Report Type: 
  Country: None (occurrence: None)
  Receive Date: 20061114
  Receipt Date: 20061026
  Transmission Date: 20070319
  Serious: Yes (Death, Hospitalization)
  Sender: FDA-Public Use
  Company Number: WAES 0610USA13893

PATIENT
  Age: 74 Year
  Sex: Female

DRUGS (1)
  1. DECADRON [Suspect]
     Indication: TEMPORAL ARTERITIS
     Dosage: 16 MG/DAILY;

REACTIONS (16)
  - ASPERGILLOSIS [None]
  - BACTERIURIA [None]
  - BLOOD LACTATE DEHYDROGENASE INCREASED [None]
  - CELL-MEDIATED IMMUNE DEFICIENCY [None]
  - DYSPNOEA [None]
  - HAEMOPTYSIS [None]
  - HEADACHE [None]
  - HERPES OESOPHAGITIS [None]
  - HERPES SIMPLEX [None]
  - INFLAMMATION [None]
  - LUNG CONSOLIDATION [None]
  - OESOPHAGITIS ULCERATIVE [None]
  - OPTIC ISCHAEMIC NEUROPATHY [None]
  - PNEUMOCYSTIS JIROVECI INFECTION [None]
  - PNEUMONIA KLEBSIELLA [None]
  - URINARY TRACT INFECTION [None]
